FAERS Safety Report 12617694 (Version 4)
Quarter: 2018Q1

REPORT INFORMATION
  Report Type: Spontaneous
  Country: US (occurrence: US)
  Receive Date: 20160803
  Receipt Date: 20180122
  Transmission Date: 20180508
  Serious: Yes (Other)
  Sender: FDA-Public Use
  Company Number: US-PFIZER INC-2016340381

PATIENT
  Age: 56 Year
  Sex: Female

DRUGS (1)
  1. XELJANZ [Suspect]
     Active Substance: TOFACITINIB CITRATE
     Dosage: 5 MG, 2X/DAY
     Route: 048
     Dates: start: 20150514

REACTIONS (6)
  - Abdominal pain upper [Unknown]
  - Nasopharyngitis [Unknown]
  - Abdominal infection [Unknown]
  - Infection [Unknown]
  - Oral infection [Unknown]
  - Gastrooesophageal reflux disease [Unknown]
